FAERS Safety Report 4429567-4 (Version None)
Quarter: 2004Q3

REPORT INFORMATION
  Report Type: 
  Country: None (occurrence: None)
  Receive Date: 20040816
  Receipt Date: 20040804
  Transmission Date: 20050211
  Serious: Yes (Life-Threatening, Hospitalization)
  Sender: FDA-Public Use
  Company Number: STA-AE-04-MTX-015

PATIENT
  Age: 50 Year
  Sex: Male

DRUGS (7)
  1. METHOTREXATE [Suspect]
     Indication: PSORIATIC ARTHROPATHY
     Dosage: 15 MG 1 X PER WK
     Dates: start: 20020101, end: 20040103
  2. ENBREL [Suspect]
     Dosage: 25 MG 2X PER 1WK
     Dates: start: 20031222, end: 20040101
  3. ENBREL [Concomitant]
  4. CORTICOSTEROID NOS (CORTICOSTEROID NOS) [Concomitant]
  5. INDOMETHACIN [Concomitant]
  6. SANDIMMUNE [Concomitant]
  7. ADALAT [Concomitant]

REACTIONS (3)
  - BONE MARROW DEPRESSION [None]
  - PERICARDIAL EFFUSION [None]
  - PNEUMONIA [None]
